APPROVED DRUG PRODUCT: BISMUTH SUBCITRATE POTASSIUM, METRONIDAZOLE AND TETRACYCLINE HYDROCHLORIDE
Active Ingredient: BISMUTH SUBCITRATE POTASSIUM; METRONIDAZOLE; TETRACYCLINE HYDROCHLORIDE
Strength: 140MG;125MG;125MG
Dosage Form/Route: CAPSULE;ORAL
Application: A217511 | Product #001 | TE Code: AB
Applicant: NOVAST LABORATORIES LTD
Approved: Jul 3, 2023 | RLD: No | RS: No | Type: RX